FAERS Safety Report 11175778 (Version 1)
Quarter: 2015Q2

REPORT INFORMATION
  Report Type: Spontaneous
  Country: US (occurrence: US)
  Receive Date: 20150609
  Receipt Date: 20150609
  Transmission Date: 20150821
  Serious: Yes (Death, Other)
  Sender: FDA-Public Use
  Company Number: US-BAYER-2015-182698

PATIENT
  Age: 78 Year
  Sex: Male

DRUGS (2)
  1. DR SCHOLLS ODOR X ODOR FIGHTING FOOT POWDER [Suspect]
     Active Substance: COSMETICS
  2. BAYER ADVANCED ASPIRIN REGULAR STRENGTH [Suspect]
     Active Substance: ASPIRIN
     Indication: ARTHRALGIA
     Dosage: 1 DF, QD
     Route: 048
     Dates: start: 20121028, end: 20121031

REACTIONS (7)
  - Cerebrovascular accident [None]
  - Pain [Unknown]
  - Mental impairment [Unknown]
  - Hypoaesthesia [Unknown]
  - Sleep disorder [Unknown]
  - Myocardial infarction [Fatal]
  - Skin ulcer [Unknown]

NARRATIVE: CASE EVENT DATE: 2012
